FAERS Safety Report 9167131 (Version 1)
Quarter: 2013Q1

REPORT INFORMATION
  Report Type: Spontaneous
  Country: US (occurrence: US)
  Receive Date: 20130318
  Receipt Date: 20130318
  Transmission Date: 20140127
  Serious: Yes (Other)
  Sender: FDA-Public Use
  Company Number: US-BIOGENIDEC-2013BI023147

PATIENT
  Age: 31 Year
  Sex: Female

DRUGS (3)
  1. AVONEX [Suspect]
     Indication: MULTIPLE SCLEROSIS
     Route: 030
     Dates: start: 19970102, end: 20001001
  2. COPAXONE [Concomitant]
     Dates: start: 200002, end: 200009
  3. BETASERON [Concomitant]

REACTIONS (8)
  - Myocardial infarction [Recovered/Resolved]
  - Memory impairment [Not Recovered/Not Resolved]
  - Depression [Unknown]
  - Chest discomfort [Unknown]
  - Flushing [Unknown]
  - Multiple sclerosis relapse [Unknown]
  - Fatigue [Recovered/Resolved]
  - Drug hypersensitivity [Unknown]
